FAERS Safety Report 7292740-4 (Version None)
Quarter: 2011Q1

REPORT INFORMATION
  Report Type: 
  Country: None (occurrence: None)
  Receive Date: 20110215
  Receipt Date: 20110208
  Transmission Date: 20110831
  Serious: Yes (Other)
  Sender: FDA-Public Use
  Company Number: US-JNJFOC-20110203136

PATIENT
  Sex: Male
  Weight: 89.36 kg

DRUGS (4)
  1. ALTACE [Concomitant]
     Route: 048
  2. WELLBUTRIN [Concomitant]
     Indication: DEPRESSION
     Route: 048
  3. METOPROLOL [Concomitant]
     Indication: BLOOD PRESSURE
     Route: 048
  4. LEVAQUIN [Suspect]
     Indication: PROSTATIC DISORDER
     Route: 048

REACTIONS (5)
  - CHOLELITHIASIS [None]
  - DIARRHOEA [None]
  - HERNIA [None]
  - GASTROINTESTINAL SOUNDS ABNORMAL [None]
  - MUSCULAR WEAKNESS [None]
